FAERS Safety Report 8282278-X (Version None)
Quarter: 2012Q2

REPORT INFORMATION
  Report Type: 
  Country: None (occurrence: None)
  Receive Date: 20120413
  Receipt Date: 20120404
  Transmission Date: 20120825
  Serious: Yes (Other)
  Sender: FDA-Public Use
  Company Number: US-JNJFOC-20110904535

PATIENT
  Sex: Female
  Weight: 19.1 kg

DRUGS (9)
  1. FOLIC ACID [Concomitant]
  2. PEPTAMEN [Concomitant]
  3. MULTI-VITAMINS [Concomitant]
  4. REMICADE [Suspect]
     Indication: INFLAMMATORY BOWEL DISEASE
     Route: 042
     Dates: start: 20110830
  5. MESALAMINE [Concomitant]
     Route: 054
  6. PREDNISONE [Concomitant]
  7. PREVACID [Concomitant]
  8. REMICADE [Suspect]
     Route: 042
     Dates: start: 20110728
  9. VITAMIN D [Concomitant]

REACTIONS (1)
  - ANAPHYLACTIC REACTION [None]
